FAERS Safety Report 10285008 (Version 1)
Quarter: 2014Q3

REPORT INFORMATION
  Report Type: Spontaneous
  Country: TR (occurrence: TR)
  Receive Date: 20140708
  Receipt Date: 20140708
  Transmission Date: 20150326
  Serious: Yes (Hospitalization)
  Sender: FDA-Public Use
  Company Number: TR-MYLANLABS-2014S1015584

PATIENT
  Age: 45 Year
  Sex: Male

DRUGS (1)
  1. METHOTREXATE [Suspect]
     Active Substance: METHOTREXATE
     Indication: PSORIASIS
     Dosage: 5G/50ML PRESCRIBED
     Route: 030

REACTIONS (7)
  - Accidental overdose [Recovering/Resolving]
  - Rash pustular [Recovering/Resolving]
  - Skin ulcer [Recovering/Resolving]
  - Hepatic enzyme increased [Recovering/Resolving]
  - Toxicity to various agents [Recovering/Resolving]
  - Drug prescribing error [Recovering/Resolving]
  - Mouth ulceration [Recovering/Resolving]
